FAERS Safety Report 25141213 (Version 1)
Quarter: 2025Q1

REPORT INFORMATION
  Report Type: Spontaneous
  Country: AE (occurrence: None)
  Receive Date: 20250330
  Receipt Date: 20250330
  Transmission Date: 20250408
  Serious: Yes (Life-Threatening)
  Sender: FDA-CTU
  Company Number: None

PATIENT
  Age: 41 Year
  Sex: Female
  Weight: 55 kg

DRUGS (1)
  1. KEYTRUDA [Suspect]
     Active Substance: PEMBROLIZUMAB
     Indication: Triple negative breast cancer
     Route: 042

REACTIONS (2)
  - Brain neoplasm [None]
  - Central nervous system lesion [None]

NARRATIVE: CASE EVENT DATE: 20250330
